FAERS Safety Report 13022508 (Version 3)
Quarter: 2017Q1

REPORT INFORMATION
  Report Type: Spontaneous
  Country: JP (occurrence: JP)
  Receive Date: 20161213
  Receipt Date: 20170203
  Transmission Date: 20170428
  Serious: Yes (Death, Hospitalization)
  Sender: FDA-Public Use
  Company Number: JP-PFIZER INC-2016565933

PATIENT
  Age: 63 Year
  Sex: Female
  Weight: 58 kg

DRUGS (9)
  1. URSODEOXYCHOLIC ACID [Concomitant]
     Active Substance: URSODIOL
     Indication: HEPATIC FUNCTION ABNORMAL
     Dosage: 100 MG, 3X/DAY
     Route: 048
     Dates: start: 20161027, end: 20161206
  2. SUTENT [Suspect]
     Active Substance: SUNITINIB MALATE
     Indication: PAPILLARY RENAL CELL CARCINOMA
     Dosage: 37.5 MG, 1X/DAY
     Route: 048
     Dates: start: 20161023, end: 20161127
  3. DENOTAS [Concomitant]
     Active Substance: CALCIUM CARBONATE\CHOLECALCIFEROL\MAGNESIUM CARBONATE
     Indication: METASTASES TO BONE
     Dosage: 2 DF, 1X/DAY
     Route: 048
     Dates: start: 20161027, end: 20161206
  4. FENTOS [Concomitant]
     Active Substance: FENTANYL
     Dosage: UNK
  5. RINDERON V [Concomitant]
     Active Substance: BETAMETHASONE VALERATE
     Indication: RENAL CANCER
     Dosage: 1 MG, 1X/DAY
     Route: 048
     Dates: start: 20161112, end: 20161204
  6. FAMOTIDINE. [Concomitant]
     Active Substance: FAMOTIDINE
     Indication: CHRONIC GASTRITIS
     Dosage: 20 MG, 2X/DAY
     Route: 048
     Dates: start: 20161107, end: 20161206
  7. MEDICON [Concomitant]
     Active Substance: DEXTROMETHORPHAN HYDROBROMIDE
     Indication: PNEUMONIA
     Dosage: 15 MG, 2X/DAY
     Route: 048
     Dates: start: 20161130, end: 20161204
  8. NOVAMIN [Concomitant]
     Active Substance: PROCHLORPERAZINE MALEATE
     Indication: VOMITING
     Dosage: 5 MG, 3X/DAY
     Route: 048
     Dates: start: 20161103, end: 20161206
  9. CALONAL [Concomitant]
     Active Substance: ACETAMINOPHEN
     Indication: CANCER PAIN
     Dosage: 400 MG, 3X/DAY
     Route: 048
     Dates: start: 20161021, end: 20161206

REACTIONS (1)
  - Interstitial lung disease [Fatal]

NARRATIVE: CASE EVENT DATE: 20161204
